FAERS Safety Report 5962619-6 (Version None)
Quarter: 2008Q4

REPORT INFORMATION
  Report Type: 
  Country: None (occurrence: None)
  Receive Date: 20081121
  Receipt Date: 20081110
  Transmission Date: 20090506
  Serious: Yes (Other)
  Sender: FDA-Public Use
  Company Number: US-PFIZER INC-2008098115

PATIENT
  Sex: Male
  Weight: 82.6 kg

DRUGS (3)
  1. CHANTIX [Suspect]
     Dates: start: 20070521
  2. LEXAPRO [Concomitant]
  3. SEROQUEL [Concomitant]

REACTIONS (3)
  - DRUG SCREEN POSITIVE [None]
  - MENTAL DISORDER [None]
  - ROAD TRAFFIC ACCIDENT [None]
